FAERS Safety Report 23703673 (Version 2)
Quarter: 2024Q3

REPORT INFORMATION
  Report Type: Spontaneous
  Country: US (occurrence: US)
  Receive Date: 20240403
  Receipt Date: 20240703
  Transmission Date: 20241016
  Serious: No
  Sender: BRISTOL MYERS SQUIBB
  Company Number: US-BRISTOL-MYERS SQUIBB COMPANY-2024-053163

PATIENT
  Age: 63 Year
  Sex: Female

DRUGS (7)
  1. ORENCIA [Suspect]
     Active Substance: ABATACEPT
     Indication: Rheumatoid arthritis
     Dosage: ONGOING
     Route: 042
     Dates: start: 202308
  2. ORENCIA [Suspect]
     Active Substance: ABATACEPT
     Dosage: ONGOING
     Route: 042
     Dates: start: 202308
  3. SODIUM CHLORIDE [Concomitant]
     Active Substance: SODIUM CHLORIDE
     Indication: Product used for unknown indication
     Dosage: 100 ML/BAG
  4. STERILE WATER [Concomitant]
     Active Substance: WATER
     Indication: Product used for unknown indication
     Dosage: 10 ML/VL
  5. SODIUM CHLORIDE [Concomitant]
     Active Substance: SODIUM CHLORIDE
     Indication: Product used for unknown indication
     Dosage: FLUSH
  6. SODIUM CHLORIDE [Concomitant]
     Active Substance: SODIUM CHLORIDE
     Dosage: FLUSH
  7. DIPHENHYDRAMINE [Concomitant]
     Active Substance: DIPHENHYDRAMINE
     Indication: Product used for unknown indication
     Dosage: 1 ML/VL

REACTIONS (4)
  - Infection [Recovering/Resolving]
  - Back pain [Unknown]
  - Arthralgia [Unknown]
  - Fall [Unknown]

NARRATIVE: CASE EVENT DATE: 20240614
